FAERS Safety Report 17899337 (Version 4)
Quarter: 2020Q4

REPORT INFORMATION
  Report Type: Report from Study
  Country: None (occurrence: US)
  Receive Date: 20200615
  Receipt Date: 20201125
  Transmission Date: 20210113
  Serious: Yes (Hospitalization, Other)
  Sender: FDA-Public Use
  Company Number: US-ABBVIE-19K-163-2698870-00

PATIENT
  Sex: Female

DRUGS (15)
  1. HUMIRA [Suspect]
     Active Substance: ADALIMUMAB
     Indication: CROHN^S DISEASE
     Route: 058
     Dates: start: 2016
  2. INSULIN [Concomitant]
     Active Substance: INSULIN NOS
     Indication: DIABETES MELLITUS
  3. TERAZOSIN [Concomitant]
     Active Substance: TERAZOSIN HYDROCHLORIDE
     Indication: HYPERTENSION
  4. VALPRESS [Concomitant]
     Indication: BLOOD POTASSIUM INCREASED
  5. BUPROPION. [Concomitant]
     Active Substance: BUPROPION
     Indication: ANXIETY
  6. VITAMIN D3 [Concomitant]
     Active Substance: CHOLECALCIFEROL
     Indication: VITAMIN SUPPLEMENTATION
  7. FUROSEMIDE. [Concomitant]
     Active Substance: FUROSEMIDE
     Indication: DIURETIC THERAPY
  8. EFFEXOR [Concomitant]
     Active Substance: VENLAFAXINE HYDROCHLORIDE
     Indication: ANXIETY
  9. LOSARTAN. [Concomitant]
     Active Substance: LOSARTAN
     Indication: HYPERTENSION
  10. AMLODIPINE [Concomitant]
     Active Substance: AMLODIPINE BESYLATE
     Indication: HYPERTENSION
  11. ATENOLOL. [Concomitant]
     Active Substance: ATENOLOL
     Indication: HYPERTENSION
  12. TYLENOL [Concomitant]
     Active Substance: ACETAMINOPHEN
     Indication: PAIN
  13. ASPIRIN (E.C.) [Concomitant]
     Active Substance: ASPIRIN
     Indication: THROMBOSIS PROPHYLAXIS
  14. HUMIRA [Suspect]
     Active Substance: ADALIMUMAB
     Route: 058
  15. ATORVASTATIN [Concomitant]
     Active Substance: ATORVASTATIN
     Indication: BLOOD CHOLESTEROL INCREASED

REACTIONS (17)
  - Pruritus [Unknown]
  - Muscle spasms [Unknown]
  - Abdominal discomfort [Not Recovered/Not Resolved]
  - Osteoarthritis [Unknown]
  - Chronic kidney disease [Not Recovered/Not Resolved]
  - Victim of crime [Unknown]
  - Diabetes mellitus [Unknown]
  - Stress [Not Recovered/Not Resolved]
  - Arthropathy [Unknown]
  - Procedural pneumothorax [Unknown]
  - Endometrial cancer stage I [Recovered/Resolved]
  - Tunnel vision [Unknown]
  - Shock symptom [Unknown]
  - General physical health deterioration [Unknown]
  - Crohn^s disease [Recovering/Resolving]
  - Abdominal pain [Unknown]
  - Hypertension [Unknown]

NARRATIVE: CASE EVENT DATE: 2017
